FAERS Safety Report 6664360-3 (Version None)
Quarter: 2010Q2

REPORT INFORMATION
  Report Type: 
  Country: None (occurrence: None)
  Receive Date: 20100401
  Receipt Date: 20100325
  Transmission Date: 20101027
  Serious: Yes (Hospitalization)
  Sender: FDA-Public Use
  Company Number: PHHO2010US04796

PATIENT
  Sex: Female
  Weight: 108.8 kg

DRUGS (6)
  1. METOPROLOL TARTRATE [Suspect]
     Dosage: UNK
     Route: 048
     Dates: start: 20040801
  2. NEXIUM [Concomitant]
  3. NORVASC [Concomitant]
  4. PRINIVIL [Concomitant]
  5. ZOCOR [Concomitant]
  6. ASPIRIN [Concomitant]

REACTIONS (8)
  - DIZZINESS [None]
  - DYSPNOEA [None]
  - LOSS OF CONSCIOUSNESS [None]
  - MUSCULOSKELETAL PAIN [None]
  - NAUSEA [None]
  - OESOPHAGEAL SPASM [None]
  - SINUS BRADYCARDIA [None]
  - SYNCOPE [None]
